FAERS Safety Report 24785084 (Version 4)
Quarter: 2025Q1

REPORT INFORMATION
  Report Type: Report from Study
  Country: CA (occurrence: CA)
  Receive Date: 20241228
  Receipt Date: 20250117
  Transmission Date: 20250409
  Serious: Yes (Other)
  Sender: TAKEDA
  Company Number: CA-TAKEDA-2024TUS128111

PATIENT
  Sex: Male

DRUGS (2)
  1. VEDOLIZUMAB [Suspect]
     Active Substance: VEDOLIZUMAB
     Indication: Crohn^s disease
  2. HULIO [Concomitant]
     Active Substance: ADALIMUMAB-FKJP

REACTIONS (12)
  - Pneumonia [Unknown]
  - Somnolence [Unknown]
  - Infectious mononucleosis [Unknown]
  - Inappropriate schedule of product administration [Unknown]
  - Infrequent bowel movements [Not Recovered/Not Resolved]
  - Hypersomnia [Unknown]
  - Abdominal pain upper [Unknown]
  - Weight decreased [Unknown]
  - Dyschezia [Unknown]
  - Abdominal pain [Not Recovered/Not Resolved]
  - Bronchitis [Unknown]
  - Pyrexia [Unknown]
